FAERS Safety Report 5059241-5 (Version None)
Quarter: 2006Q3

REPORT INFORMATION
  Report Type: 
  Country: None (occurrence: None)
  Receive Date: 20060718
  Receipt Date: 20060705
  Transmission Date: 20061208
  Serious: Yes (Hospitalization)
  Sender: FDA-Public Use
  Company Number: PAR_0700_2006

PATIENT
  Age: 91 Year
  Sex: Male

DRUGS (8)
  1. ISOPTIN SR [Suspect]
     Indication: CARDIAC FAILURE
     Dosage: 240 MG QDAY PO
     Route: 048
     Dates: start: 20030827, end: 20060608
  2. ALFUZOSIN [Concomitant]
  3. FUROSEMIDE [Concomitant]
  4. DETRUSITOL SR [Concomitant]
  5. FOLIUMACID PCH [Concomitant]
  6. ACETAMINOPHEN [Concomitant]
  7. COMBIVENT [Concomitant]
  8. NULYTELY [Concomitant]

REACTIONS (1)
  - HEPATITIS CHOLESTATIC [None]
